FAERS Safety Report 18404829 (Version 1)
Quarter: 2020Q4

REPORT INFORMATION
  Report Type: Spontaneous
  Country: FR (occurrence: FR)
  Receive Date: 20201020
  Receipt Date: 20201020
  Transmission Date: 20210114
  Serious: Yes (Hospitalization)
  Sender: FDA-Public Use
  Company Number: FR-009507513-2010FRA004309

PATIENT
  Age: 74 Year
  Sex: Female
  Weight: 74 kg

DRUGS (6)
  1. FLUCONAZOLE. [Concomitant]
     Active Substance: FLUCONAZOLE
  2. INNOHEP [Concomitant]
     Active Substance: TINZAPARIN SODIUM
  3. MIRTAZAPINE. [Concomitant]
     Active Substance: MIRTAZAPINE
  4. KEYTRUDA [Suspect]
     Active Substance: PEMBROLIZUMAB
     Indication: TRANSITIONAL CELL CARCINOMA
     Dosage: UNK
     Route: 042
  5. SERESTA [Concomitant]
     Active Substance: OXAZEPAM
  6. OFLOXACIN. [Concomitant]
     Active Substance: OFLOXACIN

REACTIONS (1)
  - Psoriasis [Not Recovered/Not Resolved]

NARRATIVE: CASE EVENT DATE: 20200924
